FAERS Safety Report 4791946-3 (Version None)
Quarter: 2005Q4

REPORT INFORMATION
  Report Type: 
  Country: None (occurrence: None)
  Receive Date: 20051005
  Receipt Date: 20050921
  Transmission Date: 20060501
  Serious: Yes (Hospitalization, Other)
  Sender: FDA-Public Use
  Company Number: 2005125103

PATIENT
  Age: 71 Year
  Sex: Female

DRUGS (6)
  1. LIPITOR [Suspect]
     Indication: DYSLIPIDAEMIA
     Dosage: 10 MG (10 MG, 1 IN 1 D), ORAL
     Route: 048
     Dates: start: 20030801
  2. INSULIN [Concomitant]
  3. GLUCOBAY [Concomitant]
  4. VALSARTAN [Concomitant]
  5. MODURETIC 5-50 [Concomitant]
  6. ATENOLOL [Concomitant]

REACTIONS (4)
  - AORTIC OCCLUSION [None]
  - BLOOD PRESSURE INCREASED [None]
  - RENAL ARTERY OCCLUSION [None]
  - VENOUS OCCLUSION [None]
